FAERS Safety Report 8356102-0 (Version None)
Quarter: 2012Q2

REPORT INFORMATION
  Report Type: 
  Country: None (occurrence: None)
  Receive Date: 20120510
  Receipt Date: 20120430
  Transmission Date: 20120825
  Serious: Yes (Death)
  Sender: FDA-Public Use
  Company Number: DKLU1079240

PATIENT
  Age: 8 Year
  Sex: Female

DRUGS (3)
  1. SABRIL [Suspect]
     Indication: COMPLEX PARTIAL SEIZURES
     Dosage: 1500 MG MILLIGRAM (S), 2 IN 1 D
     Dates: start: 20110121, end: 20120114
  2. SABRIL [Suspect]
     Indication: EPILEPSY
     Dosage: 1500 MG MILLIGRAM (S), 2 IN 1 D
     Dates: start: 20110121, end: 20120114
  3. LUPRON DEPOT [Suspect]
     Indication: PRECOCIOUS PUBERTY
     Dosage: 11.25 MG MILLIGRAM(S), 1 IN 82 D, INTRAMUSCULAR
     Route: 030
     Dates: start: 20101122, end: 20120114

REACTIONS (1)
  - DEATH [None]
